FAERS Safety Report 9618725 (Version 1)
Quarter: 2013Q4

REPORT INFORMATION
  Report Type: Spontaneous
  Country: GB (occurrence: GB)
  Receive Date: 20131014
  Receipt Date: 20131014
  Transmission Date: 20140711
  Serious: Yes (Hospitalization)
  Sender: FDA-Public Use
  Company Number: GB-ACCORD-019771

PATIENT
  Age: 69 Year
  Sex: Female

DRUGS (6)
  1. RAMIPRIL [Concomitant]
  2. ASPIRIN [Concomitant]
  3. BISOPROLOL [Concomitant]
  4. TICAGRELOR [Concomitant]
  5. LANSOPRAZOLE [Concomitant]
  6. SIMVASTATIN [Suspect]
     Indication: MYOCARDIAL INFARCTION
     Route: 048

REACTIONS (4)
  - Hepatitis [Recovering/Resolving]
  - Myositis [Recovering/Resolving]
  - Lethargy [Unknown]
  - Pain [Unknown]
